FAERS Safety Report 25447060 (Version 1)
Quarter: 2025Q2

REPORT INFORMATION
  Report Type: Spontaneous
  Country: US (occurrence: US)
  Receive Date: 20250617
  Receipt Date: 20250617
  Transmission Date: 20250716
  Serious: No
  Sender: FRESENIUS KABI
  Company Number: US-FreseniusKabi-FK202507864

PATIENT
  Sex: Female

DRUGS (2)
  1. MAGNESIUM SULFATE HEPTAHYDRATE [Suspect]
     Active Substance: MAGNESIUM SULFATE HEPTAHYDRATE
     Indication: Nervous system disorder prophylaxis
     Route: 040
  2. MAGNESIUM SULFATE HEPTAHYDRATE [Suspect]
     Active Substance: MAGNESIUM SULFATE HEPTAHYDRATE
     Route: 041

REACTIONS (3)
  - Hypotension [Unknown]
  - Off label use [Unknown]
  - Maternal exposure during pregnancy [Unknown]
